FAERS Safety Report 8522277-3 (Version None)
Quarter: 2012Q3

REPORT INFORMATION
  Report Type: 
  Country: None (occurrence: None)
  Receive Date: 20120719
  Receipt Date: 20120710
  Transmission Date: 20120928
  Serious: Yes (Other)
  Sender: FDA-Public Use
  Company Number: US-ASTRAZENECA-2012SE29022

PATIENT
  Age: 55 Year
  Sex: Female

DRUGS (5)
  1. PREVACID [Suspect]
     Route: 065
  2. PEPCID [Suspect]
     Route: 065
  3. PRILOSEC [Suspect]
     Route: 048
  4. ZANTAC [Suspect]
     Route: 065
  5. NEXIUM [Suspect]
     Route: 048

REACTIONS (2)
  - HAEMATEMESIS [None]
  - THERAPEUTIC RESPONSE UNEXPECTED [None]
